FAERS Safety Report 10403843 (Version 1)
Quarter: 2014Q3

REPORT INFORMATION
  Report Type: Report from Study
  Country: US (occurrence: US)
  Receive Date: 20140822
  Receipt Date: 20140822
  Transmission Date: 20150326
  Serious: Yes (Hospitalization, Other)
  Sender: FDA-Public Use
  Company Number: US-ABBVIE-14P-163-1273483-00

PATIENT
  Age: 18 Year
  Sex: Female

DRUGS (3)
  1. HUMIRA [Suspect]
     Active Substance: ADALIMUMAB
     Dates: start: 20140710, end: 20140710
  2. HUMIRA [Suspect]
     Active Substance: ADALIMUMAB
     Dates: start: 20140724
  3. HUMIRA [Suspect]
     Active Substance: ADALIMUMAB
     Indication: CROHN^S DISEASE
     Dates: start: 20140625, end: 20140625

REACTIONS (4)
  - Fistula [Recovered/Resolved]
  - Inflammation [Not Recovered/Not Resolved]
  - Abdominal wall abscess [Unknown]
  - Intestinal resection [Unknown]

NARRATIVE: CASE EVENT DATE: 20140807
